FAERS Safety Report 13654313 (Version 13)
Quarter: 2019Q1

REPORT INFORMATION
  Report Type: Report from Study
  Country: GB (occurrence: GB)
  Receive Date: 20170614
  Receipt Date: 20190101
  Transmission Date: 20190417
  Serious: Yes (Other)
  Sender: FDA-Public Use
  Company Number: GB-BRISTOL-MYERS SQUIBB COMPANY-BMS-2016-029577

PATIENT
  Age: 69 Year
  Sex: Female

DRUGS (10)
  1. RISEDRONATE [Concomitant]
     Active Substance: RISEDRONATE SODIUM
     Indication: PROPHYLAXIS
     Dosage: 35 MG, QD
     Route: 048
  2. CALCIUM [Concomitant]
     Active Substance: CALCIUM
     Indication: PRODUCT USED FOR UNKNOWN INDICATION
     Route: 065
  3. ABATACEPT [Suspect]
     Active Substance: ABATACEPT
     Indication: RHEUMATOID ARTHRITIS
     Dosage: 125 MG, QWK
     Route: 058
     Dates: start: 20150205
  4. PREDNISOLONE. [Concomitant]
     Active Substance: PREDNISOLONE
     Indication: RHEUMATOID ARTHRITIS
     Dosage: 7 MG, QD
     Route: 048
     Dates: start: 2014
  5. MONTELUKAST [Concomitant]
     Active Substance: MONTELUKAST SODIUM
     Indication: PRODUCT USED FOR UNKNOWN INDICATION
     Route: 065
  6. OMEPRAZOLE. [Concomitant]
     Active Substance: OMEPRAZOLE
     Indication: PRODUCT USED FOR UNKNOWN INDICATION
     Route: 065
  7. METHOTREXATE. [Concomitant]
     Active Substance: METHOTREXATE
     Indication: RHEUMATOID ARTHRITIS
     Dosage: 7.5 MG, QWK
     Route: 048
     Dates: start: 201410
  8. FOLIC ACID. [Concomitant]
     Active Substance: FOLIC ACID
     Indication: PRODUCT USED FOR UNKNOWN INDICATION
     Route: 065
  9. AMITRIPTYLINE [Concomitant]
     Active Substance: AMITRIPTYLINE
     Indication: PAIN
     Dosage: 10 MG, UNK
     Route: 048
     Dates: start: 2014
  10. VENTOLINE                          /00139501/ [Concomitant]
     Active Substance: ALBUTEROL
     Indication: PRODUCT USED FOR UNKNOWN INDICATION
     Dosage: UNK
     Route: 065

REACTIONS (22)
  - Emotional distress [Unknown]
  - Rheumatoid arthritis [Unknown]
  - Malaise [Unknown]
  - Arthralgia [Unknown]
  - Decreased immune responsiveness [Unknown]
  - Pain in extremity [Unknown]
  - Fall [Unknown]
  - Fatigue [Unknown]
  - Cardiac failure [Unknown]
  - Lower respiratory tract infection [Not Recovered/Not Resolved]
  - Eye disorder [Unknown]
  - Chronic obstructive pulmonary disease [Unknown]
  - Asthma [Unknown]
  - Product dose omission [Unknown]
  - Vision blurred [Unknown]
  - Sinusitis [Unknown]
  - Pharyngitis [Unknown]
  - Urine odour abnormal [Unknown]
  - Infection [Not Recovered/Not Resolved]
  - Wrist fracture [Unknown]
  - Urinary tract infection [Recovering/Resolving]
  - White blood cell count increased [Unknown]

NARRATIVE: CASE EVENT DATE: 20150608
